FAERS Safety Report 13471079 (Version 1)
Quarter: 2017Q2

REPORT INFORMATION
  Report Type: Other
  Country: US (occurrence: US)
  Receive Date: 20170424
  Receipt Date: 20170424
  Transmission Date: 20170830
  Serious: Yes (Hospitalization, Other)
  Sender: FDA-Public Use
  Company Number: US-SHIRE-US201708384

PATIENT
  Age: 73 Year
  Sex: Female

DRUGS (1)
  1. GATTEX [Suspect]
     Active Substance: TEDUGLUTIDE\WATER
     Indication: SHORT-BOWEL SYNDROME
     Dosage: 0.32 ML, 1X/DAY:QD
     Route: 058
     Dates: start: 20150412, end: 20170322

REACTIONS (3)
  - Intestinal obstruction [Unknown]
  - Drug dose omission [Not Recovered/Not Resolved]
  - Pancreatic cyst [Unknown]

NARRATIVE: CASE EVENT DATE: 2017
